FAERS Safety Report 9049222 (Version 1)
Quarter: 2013Q1

REPORT INFORMATION
  Report Type: Spontaneous
  Country: US (occurrence: None)
  Receive Date: 20130130
  Receipt Date: 20130130
  Transmission Date: 20140127
  Serious: Yes (Death)
  Sender: FDA-Public Use
  Company Number: None

PATIENT
  Age: 65 Year
  Sex: Female
  Weight: 63.5 kg

DRUGS (1)
  1. ORENCIA [Suspect]
     Dates: start: 20120118

REACTIONS (3)
  - Malaise [None]
  - Road traffic accident [None]
  - Feeling abnormal [None]
